FAERS Safety Report 12419471 (Version 1)
Quarter: 2016Q2

REPORT INFORMATION
  Report Type: Spontaneous
  Country: CN (occurrence: CN)
  Receive Date: 20160531
  Receipt Date: 20160531
  Transmission Date: 20160815
  Serious: Yes (Other)
  Sender: FDA-Public Use
  Company Number: CN-JNJFOC-20131102778

PATIENT
  Age: 28 Year
  Sex: Male

DRUGS (1)
  1. DAKTAGOLD [Suspect]
     Active Substance: KETOCONAZOLE
     Indication: TINEA PEDIS
     Dosage: 15 G
     Route: 061
     Dates: start: 20131020, end: 20131102

REACTIONS (4)
  - Suspected counterfeit product [Unknown]
  - Self-medication [Unknown]
  - Ulcer haemorrhage [Not Recovered/Not Resolved]
  - Pruritus [Not Recovered/Not Resolved]
